FAERS Safety Report 16684734 (Version 1)
Quarter: 2019Q3

REPORT INFORMATION
  Report Type: Not Available
  Country: US (occurrence: US)
  Receive Date: 20190808
  Receipt Date: 20190808
  Transmission Date: 20191004
  Serious: Yes (Life-Threatening, Hospitalization, Other)
  Sender: FDA-Public Use
  Company Number: US-C B FLEET CO INC-201907-US-002270

PATIENT
  Sex: Female

DRUGS (1)
  1. GOODYS EXTRA STRENGTH [Suspect]
     Active Substance: ACETAMINOPHEN\ASPIRIN\CAFFEINE
     Indication: PAIN IN JAW
     Dosage: TOOK ONE GOODY^S TWICE DAILY FOR 3 WEEKS
     Route: 048

REACTIONS (6)
  - Incorrect product administration duration [None]
  - Dizziness [Recovered/Resolved]
  - Loss of consciousness [Recovered/Resolved]
  - Vomiting [Recovered/Resolved]
  - Gastritis [Recovered/Resolved]
  - Haematemesis [Recovered/Resolved]
